FAERS Safety Report 17924891 (Version 1)
Quarter: 2020Q2

REPORT INFORMATION
  Report Type: Spontaneous
  Country: KR (occurrence: KR)
  Receive Date: 20200622
  Receipt Date: 20200622
  Transmission Date: 20200714
  Serious: Yes (Other)
  Sender: FDA-Public Use
  Company Number: KR-ADVANZ PHARMA-202002000727

PATIENT

DRUGS (2)
  1. PILOCARPINE. [Suspect]
     Active Substance: PILOCARPINE
     Dosage: UNK, RESTARTED DRUG IN MARCH
  2. PILOCARPINE. [Suspect]
     Active Substance: PILOCARPINE
     Indication: SJOGREN^S SYNDROME
     Dosage: UNK
     Route: 048

REACTIONS (3)
  - Drug ineffective [Unknown]
  - Exposure during pregnancy [Unknown]
  - Abortion spontaneous [Unknown]
